FAERS Safety Report 10967732 (Version 1)
Quarter: 2015Q1

REPORT INFORMATION
  Report Type: Spontaneous
  Country: DE (occurrence: DE)
  Receive Date: 20150330
  Receipt Date: 20150330
  Transmission Date: 20150721
  Serious: Yes (Life-Threatening)
  Sender: FDA-Public Use
  Company Number: DE-TEVA-548915GER

PATIENT
  Age: 67 Year
  Sex: Female
  Weight: 90 kg

DRUGS (3)
  1. AMIODARON [Suspect]
     Active Substance: AMIODARONE
     Indication: ATRIAL FIBRILLATION
     Dosage: 600 MILLIGRAM DAILY;
     Route: 065
     Dates: start: 20141218, end: 20141222
  2. BISOPROLOL [Concomitant]
     Active Substance: BISOPROLOL
     Indication: HYPERTENSION
     Dosage: 10 MILLIGRAM DAILY;
     Route: 048
     Dates: start: 2010, end: 20150129
  3. NIFEDIPIN RETARD [Concomitant]
     Dosage: 40 MILLIGRAM DAILY;
     Dates: start: 2010

REACTIONS (9)
  - Cheyne-Stokes respiration [Recovered/Resolved]
  - Ataxia [Recovered/Resolved]
  - Insomnia [Recovered/Resolved]
  - Respiratory distress [Recovered/Resolved]
  - Muscular weakness [Recovered/Resolved]
  - Condition aggravated [Recovered/Resolved]
  - Dizziness [Recovered/Resolved]
  - Abdominal pain upper [Recovered/Resolved]
  - Nausea [Recovered/Resolved]

NARRATIVE: CASE EVENT DATE: 20141218
